FAERS Safety Report 8189324-2 (Version None)
Quarter: 2012Q1

REPORT INFORMATION
  Report Type: 
  Country: None (occurrence: None)
  Receive Date: 20120307
  Receipt Date: 20120301
  Transmission Date: 20120608
  Serious: Yes (Death)
  Sender: FDA-Public Use
  Company Number: US-CELGENEUS-163-21880-12030230

PATIENT
  Sex: Male

DRUGS (9)
  1. CENTRUM [Concomitant]
     Route: 065
  2. FOLIC ACID [Concomitant]
     Route: 065
  3. BENAZEPRIL HYDROCHLORIDE [Concomitant]
     Route: 065
  4. GABAPENTIN [Concomitant]
     Route: 065
  5. REVLIMID [Suspect]
     Dosage: 15 MILLIGRAM
     Route: 048
     Dates: start: 20120208, end: 20120101
  6. AMLODIPINE BESYLATE [Concomitant]
     Route: 065
  7. ADVAIR DISKUS 100/50 [Concomitant]
     Route: 065
  8. ALBUTEROL SULFATE [Concomitant]
     Route: 065
  9. CARVEDILOL [Concomitant]
     Route: 065

REACTIONS (1)
  - DEATH [None]
